FAERS Safety Report 16614205 (Version 2)
Quarter: 2019Q3

REPORT INFORMATION
  Report Type: Spontaneous
  Country: JP (occurrence: JP)
  Receive Date: 20190723
  Receipt Date: 20190806
  Transmission Date: 20191004
  Serious: Yes (Hospitalization)
  Sender: FDA-Public Use
  Company Number: JP-PFIZER INC-2019312383

PATIENT
  Age: 53 Year
  Sex: Female

DRUGS (2)
  1. SELBEX [Concomitant]
     Active Substance: TEPRENONE
     Dosage: 150 MG, DAILY
     Route: 048
     Dates: start: 20170516, end: 20170516
  2. CELECOX [Suspect]
     Active Substance: CELECOXIB
     Indication: POST-TRAUMATIC PAIN
     Dosage: 200 MG, 2X/DAY
     Route: 048
     Dates: start: 20170516, end: 20170516

REACTIONS (1)
  - Fixed eruption [Recovered/Resolved]

NARRATIVE: CASE EVENT DATE: 20170516
